FAERS Safety Report 21932302 (Version 2)
Quarter: 2023Q2

REPORT INFORMATION
  Report Type: Spontaneous
  Country: US (occurrence: US)
  Receive Date: 20230131
  Receipt Date: 20230418
  Transmission Date: 20230722
  Serious: No
  Sender: FDA-Public Use
  Company Number: US-PFIZER INC-PV202300017182

PATIENT
  Age: 41 Year
  Sex: Female

DRUGS (1)
  1. IBRANCE [Suspect]
     Active Substance: PALBOCICLIB
     Dosage: 125 MG

REACTIONS (7)
  - Asthenia [Unknown]
  - Stomatitis [Unknown]
  - Contusion [Unknown]
  - Nausea [Unknown]
  - Neoplasm progression [Unknown]
  - White blood cell count decreased [Unknown]
  - Red blood cell count decreased [Unknown]
